FAERS Safety Report 25426653 (Version 2)
Quarter: 2025Q3

REPORT INFORMATION
  Report Type: Spontaneous
  Country: US (occurrence: US)
  Receive Date: 20250612
  Receipt Date: 20250707
  Transmission Date: 20251021
  Serious: No
  Sender: ROCHE
  Company Number: US-ROCHE-10000182010

PATIENT
  Age: 80 Year
  Sex: Female

DRUGS (2)
  1. ACTEMRA [Suspect]
     Active Substance: TOCILIZUMAB
     Indication: Giant cell arteritis
     Dosage: NORMAL ADULT DOSE?SHE RECEIVED LAST DOSE OF ACTEMRA- TWENTY EIGHT DAYS AGO^ CLARIFIED AS DURING -DEC
     Route: 042
     Dates: start: 202212
  2. ACTEMRA [Suspect]
     Active Substance: TOCILIZUMAB
     Route: 042

REACTIONS (13)
  - Neutrophil count decreased [Not Recovered/Not Resolved]
  - Muscle spasms [Recovering/Resolving]
  - Off label use [Unknown]
  - Blood pressure inadequately controlled [Unknown]
  - Rash [Unknown]
  - Peripheral swelling [Unknown]
  - Parkinsonism [Unknown]
  - Tremor [Not Recovered/Not Resolved]
  - Balance disorder [Not Recovered/Not Resolved]
  - Fall [Unknown]
  - Pain [Unknown]
  - Muscle spasms [Not Recovered/Not Resolved]
  - Lymphocyte count decreased [Unknown]

NARRATIVE: CASE EVENT DATE: 20230101
